FAERS Safety Report 21352117 (Version 5)
Quarter: 2022Q4

REPORT INFORMATION
  Report Type: Spontaneous
  Country: JP (occurrence: JP)
  Receive Date: 20220920
  Receipt Date: 20221120
  Transmission Date: 20230113
  Serious: Yes (Other)
  Sender: FDA-Public Use
  Company Number: JP-NOVARTISPH-NVSJ2022JP093451

PATIENT
  Age: 73 Year
  Sex: Male
  Weight: 53 kg

DRUGS (7)
  1. HYDROCHLOROTHIAZIDE\VALSARTAN [Suspect]
     Active Substance: HYDROCHLOROTHIAZIDE\VALSARTAN
     Indication: Hypertension
     Dosage: 1DF: VALSARTAN 80MG, HYDROCHLOROTHIAZIDE 12.5MG
     Route: 048
     Dates: start: 20210903, end: 20220805
  2. VALSARTAN [Suspect]
     Active Substance: VALSARTAN
     Indication: Hypertension
     Dosage: 80 MG
     Route: 048
     Dates: start: 20210427, end: 20220701
  3. VALSARTAN [Suspect]
     Active Substance: VALSARTAN
     Dosage: 40 MG
     Route: 048
     Dates: start: 20220805
  4. ENTRESTO [Suspect]
     Active Substance: SACUBITRIL\VALSARTAN
     Indication: Hypertension
     Dosage: 200 MG
     Route: 048
     Dates: start: 20220701
  5. LINAGLIPTIN [Concomitant]
     Active Substance: LINAGLIPTIN
     Indication: Diabetes mellitus
     Dosage: 5 MG, QD
     Route: 048
     Dates: start: 20211029
  6. METGLUCO [Concomitant]
     Active Substance: METFORMIN HYDROCHLORIDE
     Indication: Diabetes mellitus
     Dosage: 250 MG, BID
     Route: 048
     Dates: start: 20210730
  7. CLOPIDOGREL [Concomitant]
     Active Substance: CLOPIDOGREL BISULFATE
     Indication: Carotid artery stenosis
     Dosage: 25 MG, BID
     Route: 048
     Dates: start: 20210903

REACTIONS (5)
  - Hypokalaemia [Recovering/Resolving]
  - Blood pressure increased [Recovered/Resolved]
  - Blood pressure inadequately controlled [Recovering/Resolving]
  - Hypertension [Unknown]
  - Contraindicated product administered [Unknown]

NARRATIVE: CASE EVENT DATE: 20220527
